FAERS Safety Report 11848779 (Version 1)
Quarter: 2015Q4

REPORT INFORMATION
  Report Type: Spontaneous
  Country: FR (occurrence: ES)
  Receive Date: 20151218
  Receipt Date: 20151218
  Transmission Date: 20160305
  Serious: Yes (Other)
  Sender: FDA-Public Use
  Company Number: FR-CIPLA LTD.-2015ES09409

PATIENT

DRUGS (4)
  1. OMBITASVIR [Suspect]
     Active Substance: OMBITASVIR
     Indication: HEPATITIS C
     Dosage: UNK
     Route: 065
  2. DASABUVIR [Suspect]
     Active Substance: DASABUVIR
     Indication: HEPATITIS C
     Dosage: UNK
     Route: 065
  3. PARITAPREVIR BOOSTED WITH RITONAVIR [Suspect]
     Active Substance: PARITAPREVIR\RITONAVIR
     Indication: HEPATITIS C
     Dosage: UNK
     Route: 065
  4. RITONAVIR. [Suspect]
     Active Substance: RITONAVIR
     Indication: HEPATITIS C
     Dosage: UNK
     Route: 065

REACTIONS (1)
  - Disease recurrence [Unknown]
